FAERS Safety Report 17575627 (Version 1)
Quarter: 2020Q1

REPORT INFORMATION
  Report Type: Spontaneous
  Country: US (occurrence: US)
  Receive Date: 20200318
  Receipt Date: 20200318
  Transmission Date: 20200409
  Serious: Yes (Hospitalization, Other)
  Sender: FDA-Public Use
  Company Number: None

PATIENT
  Age: 65 Year
  Sex: Female

DRUGS (18)
  1. SILDENAFIL. [Concomitant]
     Active Substance: SILDENAFIL
  2. PANTOPRAZOLE [Concomitant]
     Active Substance: PANTOPRAZOLE
  3. VITAMIN B12 [Concomitant]
     Active Substance: CYANOCOBALAMIN
  4. METFORMIN [Concomitant]
     Active Substance: METFORMIN HYDROCHLORIDE
  5. BUMETANIDE. [Concomitant]
     Active Substance: BUMETANIDE
  6. NORTRIPTYLINE [Concomitant]
     Active Substance: NORTRIPTYLINE
  7. LOSARTAN. [Concomitant]
     Active Substance: LOSARTAN
  8. FERROUS SULFATE. [Concomitant]
     Active Substance: FERROUS SULFATE
  9. GLIPIZIDE. [Concomitant]
     Active Substance: GLIPIZIDE
  10. ASPIRIN. [Concomitant]
     Active Substance: ASPIRIN
  11. HUMULIN N [Concomitant]
     Active Substance: INSULIN HUMAN
  12. POTASSIUM CHLORIDE. [Concomitant]
     Active Substance: POTASSIUM CHLORIDE
  13. VITAMIN D3 [Concomitant]
     Active Substance: CHOLECALCIFEROL
  14. FLUOXETINE [Concomitant]
     Active Substance: FLUOXETINE HYDROCHLORIDE
  15. ATENOLOL. [Concomitant]
     Active Substance: ATENOLOL
  16. OXYGEN SUPPLEMENTAL [Concomitant]
     Active Substance: OXYGEN
  17. AMBRISENTAN 5MG TABLETS 30/BO: 5MG [Suspect]
     Active Substance: AMBRISENTAN
     Indication: PULMONARY ARTERIAL HYPERTENSION
     Route: 048
     Dates: end: 202002
  18. SIMVASTATIN. [Concomitant]
     Active Substance: SIMVASTATIN

REACTIONS (3)
  - Oedema peripheral [None]
  - Weight increased [None]
  - Dyspnoea [None]

NARRATIVE: CASE EVENT DATE: 20200206
